FAERS Safety Report 6260562-9 (Version None)
Quarter: 2009Q3

REPORT INFORMATION
  Report Type: 
  Country: None (occurrence: None)
  Receive Date: 20090708
  Receipt Date: 20090701
  Transmission Date: 20100115
  Serious: Yes (Hospitalization)
  Sender: FDA-Public Use
  Company Number: PHHO2008FR09179

PATIENT
  Sex: Female
  Weight: 63 kg

DRUGS (9)
  1. RAD 666 RAD+TAB+CMAS [Suspect]
     Indication: BREAST CANCER
     Dosage: 10MG/DAY
     Route: 048
     Dates: start: 20080320, end: 20080718
  2. RAD 666 RAD+TAB+CMAS [Suspect]
     Dosage: 5MG/DAY
     Route: 048
     Dates: start: 20080725, end: 20080801
  3. RAD 666 RAD+TAB+CMAS [Suspect]
     Dates: end: 20080804
  4. PACLITAXEL [Suspect]
     Indication: BREAST CANCER
     Dosage: 60MG
     Route: 042
     Dates: start: 20080320, end: 20080718
  5. PACLITAXEL [Suspect]
     Dosage: 60 MG/M2
     Route: 042
     Dates: start: 20080725, end: 20080801
  6. TRASTUZUMAB [Concomitant]
     Indication: BREAST CANCER
     Dosage: 2 MG/KG
     Route: 042
     Dates: start: 20080320, end: 20080718
  7. TRASTUZUMAB [Concomitant]
     Dosage: 2 MG/KG
     Route: 042
     Dates: start: 20080725, end: 20080801
  8. TRASTUZUMAB [Concomitant]
     Dosage: 2 MG/KG
     Route: 042
     Dates: start: 20080808
  9. AMOXICILLIN [Suspect]

REACTIONS (2)
  - GASTROINTESTINAL HAEMORRHAGE [None]
  - HELICOBACTER INFECTION [None]
